FAERS Safety Report 5894737-5 (Version None)
Quarter: 2008Q3

REPORT INFORMATION
  Report Type: 
  Country: None (occurrence: None)
  Receive Date: 20080924
  Receipt Date: 20080603
  Transmission Date: 20090109
  Serious: No
  Sender: FDA-Public Use
  Company Number: US-ASTRAZENECA-2008UW11163

PATIENT
  Age: 60 Year
  Sex: Female
  Weight: 105.7 kg

DRUGS (4)
  1. SEROQUEL [Suspect]
     Indication: SLEEP DISORDER
     Route: 048
  2. SERTRALINE [Concomitant]
  3. TOPAMAX [Concomitant]
  4. LIPITOR [Concomitant]

REACTIONS (1)
  - ILL-DEFINED DISORDER [None]
